FAERS Safety Report 9578044 (Version 1)
Quarter: 2013Q4

REPORT INFORMATION
  Report Type: Spontaneous
  Country: US (occurrence: US)
  Receive Date: 20131001
  Receipt Date: 20131001
  Transmission Date: 20140711
  Serious: No
  Sender: FDA-Public Use
  Company Number: US-AMGEN-USASP2013011157

PATIENT
  Sex: Female
  Weight: 65.76 kg

DRUGS (7)
  1. ENBREL [Suspect]
     Indication: RHEUMATOID ARTHRITIS
     Dosage: 50 MG, QWK
     Route: 058
  2. METFORMIN [Concomitant]
     Dosage: 1000 MG, UNK
  3. NEXIUM                             /01479302/ [Concomitant]
     Dosage: 40 MG, UNK
  4. VITAMIN D                          /00107901/ [Concomitant]
     Dosage: 2000 UNIT, UNK
  5. VITAMIN B [Concomitant]
     Dosage: UNK
  6. VITAMIN E                          /00110501/ [Concomitant]
     Dosage: 400 UNIT, UNK
  7. CALCIUM +D                         /00944201/ [Concomitant]
     Dosage: 1000 UNK, UNK

REACTIONS (3)
  - Drug ineffective [Unknown]
  - Injection site pain [Unknown]
  - Influenza [Unknown]
